FAERS Safety Report 8162972-1 (Version None)
Quarter: 2012Q1

REPORT INFORMATION
  Report Type: 
  Country: None (occurrence: None)
  Receive Date: 20120224
  Receipt Date: 20120217
  Transmission Date: 20120608
  Serious: Yes (Death, Other)
  Sender: FDA-Public Use
  Company Number: US-BAYER-200940587NA

PATIENT
  Age: 73 Year
  Sex: Female
  Weight: 49.887 kg

DRUGS (21)
  1. TRASYLOL [Suspect]
     Indication: ATRIAL SEPTAL DEFECT REPAIR
  2. HEPARIN [Concomitant]
  3. LASIX [Concomitant]
     Dosage: UNK
     Dates: start: 19900101
  4. OMNIPAQUE 140 [Concomitant]
     Indication: CATHETERISATION CARDIAC
     Dosage: 200 ML, UNK
     Dates: start: 20040519
  5. ALDACTONE [Concomitant]
     Dosage: 25 MG, QD
     Route: 048
  6. IBUPROFEN [Concomitant]
     Route: 048
  7. TRIAMCINOLONE [Concomitant]
     Dosage: UNK
     Route: 061
     Dates: start: 20040427
  8. TRASYLOL [Suspect]
     Indication: MITRAL VALVE REPLACEMENT
     Dosage: 10,0000 KIU TIMES 3
     Route: 042
     Dates: start: 20040618
  9. TRAZODONE HCL [Concomitant]
     Dosage: UNK
     Route: 048
     Dates: start: 20040316
  10. SODIUM BICARBONATE [Concomitant]
  11. BIAXIN [Concomitant]
     Indication: ANTIBIOTIC PROPHYLAXIS
     Dosage: UNK
     Route: 048
     Dates: start: 20040201, end: 20040201
  12. ZANTAC [Concomitant]
     Dosage: 150 MG, QD
     Route: 048
  13. BENZONATATE [Concomitant]
     Dosage: UNK
     Route: 048
     Dates: start: 20040525
  14. LASIX [Concomitant]
     Dosage: 40 MG, UNK
     Route: 048
  15. AVELOX [Concomitant]
     Indication: ANTIBIOTIC PROPHYLAXIS
     Dosage: 400 MG, UNK
     Route: 048
     Dates: end: 20040301
  16. ASPIRIN [Concomitant]
  17. LISINOPRIL [Concomitant]
     Dosage: UNK
     Dates: start: 19800101
  18. FUROSEMIDE [Concomitant]
     Dosage: UNK
     Dates: start: 19900101
  19. DOPAMINE HCL [Concomitant]
     Dosage: 5MCG/KG/MIN
     Dates: start: 20040618
  20. TRASYLOL [Suspect]
     Indication: TRICUSPID VALVE REPAIR
  21. AZITHROMYCIN [Concomitant]
     Indication: ANTIBIOTIC PROPHYLAXIS
     Dosage: 500 MG, QD
     Route: 048
     Dates: end: 20040216

REACTIONS (13)
  - RENAL IMPAIRMENT [None]
  - INJURY [None]
  - RENAL INJURY [None]
  - UNEVALUABLE EVENT [None]
  - DEATH [None]
  - STRESS [None]
  - ANXIETY [None]
  - FEAR [None]
  - MULTI-ORGAN FAILURE [None]
  - PAIN [None]
  - RENAL FAILURE [None]
  - EMOTIONAL DISTRESS [None]
  - ANHEDONIA [None]
